FAERS Safety Report 16031789 (Version 3)
Quarter: 2019Q2

REPORT INFORMATION
  Report Type: Report from Study
  Country: US (occurrence: US)
  Receive Date: 20190304
  Receipt Date: 20190531
  Transmission Date: 20190711
  Serious: Yes (Hospitalization)
  Sender: FDA-Public Use
  Company Number: US-ACTELION-A-NJ2019-186710

PATIENT
  Age: 69 Year
  Sex: Female

DRUGS (16)
  1. METOLAZONE. [Concomitant]
     Active Substance: METOLAZONE
  2. SPIRIVA [Concomitant]
     Active Substance: TIOTROPIUM BROMIDE MONOHYDRATE
  3. LASIX [Concomitant]
     Active Substance: FUROSEMIDE
     Dosage: UNK
  4. QVAR [Concomitant]
     Active Substance: BECLOMETHASONE DIPROPIONATE
  5. OPSUMIT [Suspect]
     Active Substance: MACITENTAN
     Indication: PULMONARY ARTERIAL HYPERTENSION
     Dosage: 10 MG, QD
     Route: 048
     Dates: start: 20190116
  6. VITAMIN C [Concomitant]
     Active Substance: ASCORBIC ACID
  7. COLACE [Concomitant]
     Active Substance: DOCUSATE SODIUM
  8. TEMAZEPAM. [Concomitant]
     Active Substance: TEMAZEPAM
  9. ALBUTEROL. [Concomitant]
     Active Substance: ALBUTEROL
  10. ATORVASTATIN [Concomitant]
     Active Substance: ATORVASTATIN
  11. PLAVIX [Concomitant]
     Active Substance: CLOPIDOGREL BISULFATE
  12. NORCO [Concomitant]
     Active Substance: ACETAMINOPHEN\HYDROCODONE BITARTRATE
  13. SILDENAFIL. [Concomitant]
     Active Substance: SILDENAFIL
  14. POTASSIUM CHLORIDE. [Concomitant]
     Active Substance: POTASSIUM CHLORIDE
  15. SINGULAIR [Concomitant]
     Active Substance: MONTELUKAST SODIUM
  16. ASPIRIN. [Concomitant]
     Active Substance: ASPIRIN

REACTIONS (18)
  - Viral infection [Unknown]
  - Upper respiratory tract infection [Unknown]
  - Multiple organ dysfunction syndrome [Unknown]
  - Syncope [Unknown]
  - Sepsis [Unknown]
  - Blood urea increased [Recovering/Resolving]
  - Hypovolaemia [Unknown]
  - Fluid overload [Unknown]
  - Blood creatinine increased [Recovering/Resolving]
  - Anion gap increased [Unknown]
  - Brain natriuretic peptide decreased [Unknown]
  - Chronic obstructive pulmonary disease [Unknown]
  - Headache [Unknown]
  - Vision blurred [Unknown]
  - Acute respiratory failure [Unknown]
  - Pneumonia [Unknown]
  - Blood chloride decreased [Unknown]
  - Papilloedema [Unknown]

NARRATIVE: CASE EVENT DATE: 20190213
